FAERS Safety Report 12597474 (Version 1)
Quarter: 2016Q3

REPORT INFORMATION
  Report Type: Spontaneous
  Country: US (occurrence: US)
  Receive Date: 20160726
  Receipt Date: 20160726
  Transmission Date: 20161109
  Serious: No
  Sender: FDA-Public Use
  Company Number: US-UNITED THERAPEUTICS-UNT-2016-000152

PATIENT
  Age: 50 Year
  Sex: Female
  Weight: 111.38 kg

DRUGS (1)
  1. TYVASO [Suspect]
     Active Substance: TREPROSTINIL
     Indication: PULMONARY HYPERTENSION
     Dosage: 18-54 MICROGRAMS, QID
     Dates: start: 20151214

REACTIONS (13)
  - Dry throat [Unknown]
  - Hyperhidrosis [Unknown]
  - Flushing [Unknown]
  - Secretion discharge [Not Recovered/Not Resolved]
  - Hiccups [Unknown]
  - Adverse event [Unknown]
  - Pain in jaw [Recovered/Resolved]
  - Cough [Unknown]
  - Chest discomfort [Recovered/Resolved]
  - Dry mouth [Recovered/Resolved]
  - Oral pain [Not Recovered/Not Resolved]
  - Throat irritation [Unknown]
  - Headache [Unknown]

NARRATIVE: CASE EVENT DATE: 20151214
